FAERS Safety Report 7853738-8 (Version None)
Quarter: 2011Q4

REPORT INFORMATION
  Report Type: 
  Country: None (occurrence: None)
  Receive Date: 20111026
  Receipt Date: 20111018
  Transmission Date: 20120403
  Serious: Yes (Death, Other)
  Sender: FDA-Public Use
  Company Number: US-BAXTER-2010BH003407

PATIENT
  Age: 64 Year
  Sex: Female
  Weight: 127 kg

DRUGS (22)
  1. DILAUDID [Concomitant]
     Indication: PRODUCT USED FOR UNKNOWN INDICATION
     Route: 065
  2. LEXAPRO [Concomitant]
     Indication: PRODUCT USED FOR UNKNOWN INDICATION
     Route: 065
  3. NEPHRO-VITE RX [Concomitant]
     Indication: PRODUCT USED FOR UNKNOWN INDICATION
     Route: 065
  4. REGLAN [Concomitant]
     Indication: PRODUCT USED FOR UNKNOWN INDICATION
     Route: 065
  5. ATIVAN [Concomitant]
     Indication: PRODUCT USED FOR UNKNOWN INDICATION
     Route: 065
  6. ARGATROBAN [Suspect]
     Indication: DEEP VEIN THROMBOSIS
     Route: 042
     Dates: start: 20080107, end: 20080101
  7. ARGATROBAN [Suspect]
     Route: 065
     Dates: start: 20080201, end: 20080201
  8. RITALIN [Concomitant]
     Indication: PRODUCT USED FOR UNKNOWN INDICATION
     Route: 065
  9. VITAMIN K TAB [Concomitant]
     Indication: PRODUCT USED FOR UNKNOWN INDICATION
     Route: 065
  10. MIRTAZAPINE [Concomitant]
     Indication: PRODUCT USED FOR UNKNOWN INDICATION
     Route: 065
  11. SEPTRA DS [Concomitant]
     Indication: PRODUCT USED FOR UNKNOWN INDICATION
     Route: 065
  12. WARFARIN SODIUM [Concomitant]
     Indication: ATRIAL FIBRILLATION
     Route: 065
  13. HEPARIN SODIUM INJECTION [Suspect]
     Indication: DEEP VEIN THROMBOSIS
     Route: 040
     Dates: start: 20080102, end: 20080102
  14. HEPARIN SODIUM INJECTION [Suspect]
     Route: 058
     Dates: start: 20080101, end: 20080107
  15. HEPARIN SODIUM 5,000 UNITS IN DEXTROSE 5% [Suspect]
     Indication: DEEP VEIN THROMBOSIS
     Route: 041
     Dates: start: 20080102, end: 20080107
  16. BUMEX [Concomitant]
     Indication: PRODUCT USED FOR UNKNOWN INDICATION
     Route: 065
  17. PROBIOTICA [Concomitant]
     Indication: PRODUCT USED FOR UNKNOWN INDICATION
     Route: 048
  18. ATENOLOL [Concomitant]
     Indication: PRODUCT USED FOR UNKNOWN INDICATION
     Route: 065
  19. PRILOSEC [Concomitant]
     Indication: PRODUCT USED FOR UNKNOWN INDICATION
     Route: 065
  20. ARANESP [Concomitant]
     Indication: PRODUCT USED FOR UNKNOWN INDICATION
     Route: 065
  21. CEPACOL [Concomitant]
     Indication: PRODUCT USED FOR UNKNOWN INDICATION
     Route: 048
  22. ZOFRAN [Concomitant]
     Indication: PRODUCT USED FOR UNKNOWN INDICATION
     Route: 065

REACTIONS (23)
  - ABDOMINAL PAIN [None]
  - ASTHENIA [None]
  - ABDOMINAL ABSCESS [None]
  - SEPSIS [None]
  - DIVERTICULAR PERFORATION [None]
  - COAGULATION TIME PROLONGED [None]
  - HYPOTENSION [None]
  - CARDIAC DISORDER [None]
  - DYSPNOEA [None]
  - ERYTHEMA [None]
  - ANXIETY [None]
  - PHARYNGEAL OEDEMA [None]
  - CHEST PAIN [None]
  - ORGAN FAILURE [None]
  - HAEMORRHAGE SUBEPIDERMAL [None]
  - MENTAL STATUS CHANGES [None]
  - NAUSEA [None]
  - HEPARIN-INDUCED THROMBOCYTOPENIA [None]
  - SHOCK [None]
  - VOMITING [None]
  - HYPERHIDROSIS [None]
  - CARDIO-RESPIRATORY ARREST [None]
  - PERONEAL NERVE PALSY [None]
